FAERS Safety Report 22374157 (Version 2)
Quarter: 2023Q2

REPORT INFORMATION
  Report Type: Spontaneous
  Country: US (occurrence: US)
  Receive Date: 20230526
  Receipt Date: 20230629
  Transmission Date: 20230722
  Serious: Yes (Other)
  Sender: FDA-Public Use
  Company Number: US-FreseniusKabi-FK202306906

PATIENT
  Age: 66 Year
  Sex: Male
  Weight: 113 kg

DRUGS (7)
  1. VANCOMYCIN HYDROCHLORIDE [Suspect]
     Active Substance: VANCOMYCIN HYDROCHLORIDE
     Indication: Lymphoedema
     Dosage: AT 0828 IVPB ONCE
     Route: 042
  2. CEFEPIME [Suspect]
     Active Substance: CEFEPIME HYDROCHLORIDE
     Indication: Cellulitis
     Dosage: 2G / 10ML SYRINGE; G IVPUSH AT 0700 BEFORE VANCOMYCIN AND BEFORE ALLERGIC REACTION NOTED AROUND 0900
     Route: 042
     Dates: start: 20230127
  3. ACETAMINOPHEN [Concomitant]
     Active Substance: ACETAMINOPHEN
     Indication: Product used for unknown indication
  4. CICLOPIROX [Concomitant]
     Active Substance: CICLOPIROX
     Indication: Product used for unknown indication
  5. ELIQUIS [Concomitant]
     Active Substance: APIXABAN
     Indication: Product used for unknown indication
  6. Sterile water (by Hospira) [Concomitant]
     Indication: Product used for unknown indication
  7. multi?vitamin [Concomitant]
     Indication: Product used for unknown indication

REACTIONS (1)
  - Hypersensitivity [Recovering/Resolving]

NARRATIVE: CASE EVENT DATE: 20230127
